FAERS Safety Report 10066683 (Version 3)
Quarter: 2014Q3

REPORT INFORMATION
  Report Type: Spontaneous
  Country: JP (occurrence: JP)
  Receive Date: 20140408
  Receipt Date: 20140709
  Transmission Date: 20150326
  Serious: Yes (Disabling)
  Sender: FDA-Public Use
  Company Number: PHHY2014JP041828

PATIENT
  Age: 63 Year
  Sex: Male
  Weight: 60 kg

DRUGS (4)
  1. AZUNOL//SODIUM GUALENATE [Concomitant]
     Indication: INFECTION
     Dosage: 5 ML, UNK
     Route: 048
     Dates: start: 20130725
  2. GRACEVIT [Concomitant]
     Active Substance: SITAFLOXACIN
     Indication: INFECTION
     Dosage: 150 MG, UNK
     Route: 048
     Dates: start: 20130725
  3. ZOMETA [Suspect]
     Active Substance: ZOLEDRONIC ACID
     Indication: METASTASES TO BONE
     Dosage: 3.5 MG, PER ADMINISTRATION
     Route: 041
     Dates: start: 20130327, end: 20131204
  4. CALONAL [Concomitant]
     Active Substance: ACETAMINOPHEN
     Indication: CONVULSION
     Dosage: 400 MG, UNK
     Route: 048
     Dates: start: 20130725

REACTIONS (8)
  - Pain [Unknown]
  - Tooth avulsion [Unknown]
  - Pericoronitis [Unknown]
  - Bone lesion [Unknown]
  - Osteonecrosis of jaw [Not Recovered/Not Resolved]
  - Pulpitis dental [Unknown]
  - Periodontitis [Unknown]
  - Exposed bone in jaw [Unknown]

NARRATIVE: CASE EVENT DATE: 20130705
